FAERS Safety Report 12250155 (Version 1)
Quarter: 2016Q2

REPORT INFORMATION
  Report Type: Report from Study
  Country: UY (occurrence: UY)
  Receive Date: 20160408
  Receipt Date: 20160408
  Transmission Date: 20160815
  Serious: Yes (Other)
  Sender: FDA-Public Use
  Company Number: UY-ABBVIE-16K-168-1597886-00

PATIENT
  Age: 43 Year
  Sex: Female

DRUGS (1)
  1. HUMIRA [Suspect]
     Active Substance: ADALIMUMAB
     Indication: RHEUMATOID ARTHRITIS
     Route: 058
     Dates: start: 20151109

REACTIONS (3)
  - Vomiting [Unknown]
  - Hypertensive crisis [Not Recovered/Not Resolved]
  - Headache [Unknown]

NARRATIVE: CASE EVENT DATE: 201603
